FAERS Safety Report 14485609 (Version 2)
Quarter: 2018Q1

REPORT INFORMATION
  Report Type: Spontaneous
  Country: AT (occurrence: AT)
  Receive Date: 20180205
  Receipt Date: 20180222
  Transmission Date: 20180509
  Serious: Yes (Death)
  Sender: FDA-Public Use
  Company Number: AT-ACTELION-A-CH2018-166632

PATIENT
  Age: 74 Year
  Sex: Female
  Weight: 48 kg

DRUGS (15)
  1. ACTONEL [Concomitant]
     Active Substance: RISEDRONATE SODIUM
  2. MG [Concomitant]
     Active Substance: MAGNESIUM
  3. SANGENOR [Concomitant]
  4. PRAVASTATIN. [Concomitant]
     Active Substance: PRAVASTATIN
  5. PASPERTIN [METOCLOPRAMIDE HYDROCHLORIDE] [Concomitant]
     Active Substance: METOCLOPRAMIDE HYDROCHLORIDE
  6. ZOFRAN [Concomitant]
     Active Substance: ONDANSETRON HYDROCHLORIDE
  7. TRITTICO [Concomitant]
     Active Substance: TRAZODONE HYDROCHLORIDE
     Dosage: 150 MG, UNK
  8. TEBOFORTAN [Concomitant]
     Active Substance: GINKGO
  9. LOVENOX [Concomitant]
     Active Substance: ENOXAPARIN SODIUM
     Dosage: 60 MG, BID
  10. NOVALGIN (METAMIZOLE SODIUM) [Concomitant]
     Active Substance: METAMIZOLE SODIUM
     Dosage: 20 DROP, TID
  11. TRACLEER [Suspect]
     Active Substance: BOSENTAN
     Indication: SKIN ULCER
     Dosage: 62.5 MG, BID
     Route: 048
     Dates: start: 20171225, end: 20171230
  12. THROMBO ASS [Concomitant]
     Active Substance: ASPIRIN
     Dosage: 100 MG, UNK
  13. LASIX [Concomitant]
     Active Substance: FUROSEMIDE
  14. HYDAL [Concomitant]
     Active Substance: HYDROMORPHONE HYDROCHLORIDE
     Dosage: 4 MG, BID
  15. FE [Concomitant]
     Active Substance: IRON

REACTIONS (1)
  - Metastatic bronchial carcinoma [Fatal]
